FAERS Safety Report 7018840-1 (Version None)
Quarter: 2010Q3

REPORT INFORMATION
  Report Type: 
  Country: None (occurrence: None)
  Receive Date: 20100928
  Receipt Date: 20100921
  Transmission Date: 20110219
  Serious: Yes (Disabling, Other)
  Sender: FDA-Public Use
  Company Number: BR-PFIZER INC-2010119731

PATIENT
  Age: 44 Year
  Sex: Male

DRUGS (1)
  1. LIPITOR [Suspect]
     Dosage: 20 MG, UNK
     Route: 048
     Dates: start: 20100701

REACTIONS (5)
  - ERYTHEMA [None]
  - FEELING HOT [None]
  - HYPERSENSITIVITY [None]
  - SCROTAL ULCER [None]
  - SKIN LESION [None]
